FAERS Safety Report 7311932-9 (Version None)
Quarter: 2011Q1

REPORT INFORMATION
  Report Type: 
  Country: None (occurrence: None)
  Receive Date: 20110224
  Receipt Date: 20110214
  Transmission Date: 20110831
  Serious: Yes (Other)
  Sender: FDA-Public Use
  Company Number: PHHY2011MA11907

PATIENT
  Age: 64 Year
  Sex: Female

DRUGS (1)
  1. EXFORGE [Suspect]
     Indication: HYPERTENSION
     Dosage: 160 MG OF VALS AND 5 MG OF AMLO DAILY
     Route: 048
     Dates: start: 20110112

REACTIONS (4)
  - SENSATION OF HEAVINESS [None]
  - VIITH NERVE PARALYSIS [None]
  - BLOOD PRESSURE DECREASED [None]
  - ISCHAEMIC STROKE [None]
